FAERS Safety Report 24930281 (Version 3)
Quarter: 2025Q2

REPORT INFORMATION
  Report Type: Spontaneous
  Country: US (occurrence: US)
  Receive Date: 20250205
  Receipt Date: 20250515
  Transmission Date: 20250716
  Serious: Yes (Other)
  Sender: PFIZER
  Company Number: US-PFIZER INC-202500024284

PATIENT
  Age: 82 Year
  Sex: Female

DRUGS (34)
  1. IBRANCE [Suspect]
     Active Substance: PALBOCICLIB
     Route: 048
     Dates: start: 20250207
  2. LOSARTAN POTASSIUM [Concomitant]
     Active Substance: LOSARTAN POTASSIUM
  3. CALCIUM +D [CALCIUM CARBONATE;COLECALCIFEROL] [Concomitant]
  4. TROSPIUM CHLORIDE [Concomitant]
     Active Substance: TROSPIUM CHLORIDE
  5. ISOSORBIDE MONONITRATE [Concomitant]
     Active Substance: ISOSORBIDE MONONITRATE
  6. METOPROLOL TARTRATE [Concomitant]
     Active Substance: METOPROLOL TARTRATE
  7. METFORMIN [Concomitant]
     Active Substance: METFORMIN HYDROCHLORIDE
  8. IRBESARTAN [Concomitant]
     Active Substance: IRBESARTAN
  9. IRBESARTAN [Concomitant]
     Active Substance: IRBESARTAN
  10. ELIQUIS [Concomitant]
     Active Substance: APIXABAN
  11. ASPIRIN [Concomitant]
     Active Substance: ASPIRIN
  12. GABAPENTIN [Concomitant]
     Active Substance: GABAPENTIN
  13. ARANESP [Concomitant]
     Active Substance: DARBEPOETIN ALFA
  14. LETROZOLE [Concomitant]
     Active Substance: LETROZOLE
  15. ZOLEDRONIC [Concomitant]
     Active Substance: ZOLEDRONIC ACID
  16. AZITHROMYCIN [Concomitant]
     Active Substance: AZITHROMYCIN
  17. VITAMIN B COMPLEX [Concomitant]
     Active Substance: CYANOCOBALAMIN\DEXPANTHENOL\NIACINAMIDE\PYRIDOXINE HYDROCHLORIDE\RIBOFLAVIN 5^-PHOSPHATE SODIUM\THIA
  18. CLARITIN [Concomitant]
     Active Substance: LORATADINE
  19. CRANBERRY [Concomitant]
     Active Substance: CRANBERRY
  20. DEMANNOSE [Concomitant]
     Active Substance: DEMANNOSE
  21. MINERALS\VITAMINS [Concomitant]
     Active Substance: MINERALS\VITAMINS
  22. METOPROLOL SUCCINATE [Concomitant]
     Active Substance: METOPROLOL SUCCINATE
  23. ROSUVASTATIN [Concomitant]
     Active Substance: ROSUVASTATIN
  24. TRAMADOL HCL [Concomitant]
     Active Substance: TRAMADOL HYDROCHLORIDE
  25. VITAMIN C [Concomitant]
     Active Substance: ASCORBIC ACID
  26. BIFIDOBACTERIUM ANIMALIS LACTIS [Concomitant]
     Active Substance: BIFIDOBACTERIUM ANIMALIS LACTIS
  27. ASPIRIN [Concomitant]
     Active Substance: ASPIRIN
  28. CALCIUM [Concomitant]
     Active Substance: CALCIUM
  29. ISOSORB [ISOSORBIDE DINITRATE] [Concomitant]
  30. LOSARTAN [Concomitant]
     Active Substance: LOSARTAN
  31. METOPROLOL [Concomitant]
     Active Substance: METOPROLOL
  32. TRAMADOL [Concomitant]
     Active Substance: TRAMADOL
  33. TROSPIUM [Concomitant]
     Active Substance: TROSPIUM
  34. CALCIUM\VITAMIN D [Concomitant]
     Active Substance: CALCIUM\VITAMIN D

REACTIONS (2)
  - Full blood count decreased [Unknown]
  - Fatigue [Unknown]
